FAERS Safety Report 9671002 (Version 8)
Quarter: 2014Q3

REPORT INFORMATION
  Report Type: Report from Study
  Country: JP (occurrence: JP)
  Receive Date: 20131106
  Receipt Date: 20140820
  Transmission Date: 20150326
  Serious: Yes (Hospitalization, Other)
  Sender: FDA-Public Use
  Company Number: JP-ABBVIE-13X-087-1111504-00

PATIENT
  Age: 73 Year
  Sex: Male

DRUGS (5)
  1. LIPACREON CAPSULES 150 MG [Suspect]
     Active Substance: PANCRELIPASE
     Indication: PANCREATIC INSUFFICIENCY
  2. LIPACREON CAPSULES 150 MG [Suspect]
     Active Substance: PANCRELIPASE
     Indication: PANCREATIC CARCINOMA
     Route: 048
     Dates: start: 20121210
  3. TS-1 [Suspect]
     Active Substance: GIMERACIL\OTERACIL POTASSIUM\TEGAFUR
     Indication: PANCREATIC CARCINOMA
     Dosage: 120 MG DAILY; DAY1 TO DAY8
     Route: 048
     Dates: start: 20110107
  4. ESOMEPRAZOLE MAGNESIUM. [Suspect]
     Active Substance: ESOMEPRAZOLE MAGNESIUM
     Indication: PRODUCT USED FOR UNKNOWN INDICATION
     Route: 048
     Dates: start: 20131111
  5. IRINOTECAN HYDROCHLORIDE. [Suspect]
     Active Substance: IRINOTECAN HYDROCHLORIDE
     Indication: PANCREATIC CARCINOMA
     Route: 041
     Dates: start: 20130218, end: 20130218

REACTIONS (8)
  - Febrile neutropenia [Recovered/Resolved]
  - Hypogeusia [Not Recovered/Not Resolved]
  - Abdominal pain [Recovering/Resolving]
  - White blood cell count decreased [Recovered/Resolved]
  - Cholangitis [Recovering/Resolving]
  - Cholangitis [Recovering/Resolving]
  - Bile duct stone [Recovering/Resolving]
  - Bile duct stone [Recovering/Resolving]

NARRATIVE: CASE EVENT DATE: 20130224
